FAERS Safety Report 10167845 (Version 1)
Quarter: 2014Q2

REPORT INFORMATION
  Report Type: Spontaneous
  Country: IT (occurrence: IT)
  Receive Date: 20140512
  Receipt Date: 20140512
  Transmission Date: 20141212
  Serious: Yes (Other)
  Sender: FDA-Public Use
  Company Number: IT-TEVA-480020ISR

PATIENT
  Age: 51 Year
  Sex: Male

DRUGS (1)
  1. OLANZAPINA TEVA 5 MG [Suspect]
     Indication: PSYCHOTIC DISORDER
     Dosage: 5 MILLIGRAM DAILY;
     Route: 048

REACTIONS (10)
  - Oral bacterial infection [Recovering/Resolving]
  - Restlessness [Recovering/Resolving]
  - Sleep disorder [Recovering/Resolving]
  - Food aversion [Recovering/Resolving]
  - Product substitution issue [Recovering/Resolving]
  - Delusional perception [Recovering/Resolving]
  - Persecutory delusion [Recovering/Resolving]
  - Condition aggravated [Recovering/Resolving]
  - Dermatitis [Recovering/Resolving]
  - Weight decreased [Recovering/Resolving]
